FAERS Safety Report 20673491 (Version 1)
Quarter: 2022Q2

REPORT INFORMATION
  Report Type: Spontaneous
  Country: US (occurrence: None)
  Receive Date: 20220403
  Receipt Date: 20220403
  Transmission Date: 20220721
  Serious: Yes (Hospitalization)
  Sender: FDA-Public Use
  Company Number: None

PATIENT
  Age: 55 Year
  Sex: Male
  Weight: 91 kg

DRUGS (1)
  1. TOCILIZUMAB [Suspect]
     Active Substance: TOCILIZUMAB
     Indication: COVID-19
     Dosage: FREQUENCY : ONCE;?
     Route: 042
     Dates: start: 20220128, end: 20220128

REACTIONS (7)
  - Bacterial infection [None]
  - Superinfection [None]
  - Tracheal aspirate culture [None]
  - Culture positive [None]
  - Pathogen resistance [None]
  - Escherichia infection [None]
  - Pneumonia fungal [None]
